FAERS Safety Report 8780557 (Version 2)
Quarter: 2012Q4

REPORT INFORMATION
  Report Type: 
  Country: US (occurrence: US)
  Receive Date: 20120913
  Receipt Date: 20121018
  Transmission Date: 20130627
  Serious: Yes (Other)
  Sender: FDA-Public Use
  Company Number: US-PFIZER INC-2012222799

PATIENT
  Sex: Female

DRUGS (2)
  1. NORVASC [Suspect]
     Dosage: UNK
     Dates: start: 20070101, end: 20120910
  2. XALATAN [Suspect]
     Dosage: UNK
     Dates: start: 20070101, end: 20120910

REACTIONS (1)
  - Cerebrovascular accident [Unknown]
